FAERS Safety Report 5708027-4 (Version None)
Quarter: 2008Q2

REPORT INFORMATION
  Report Type: 
  Country: None (occurrence: None)
  Receive Date: 20080417
  Receipt Date: 20080410
  Transmission Date: 20081010
  Serious: Yes (Death)
  Sender: FDA-Public Use
  Company Number: JP-AVENTIS-200810844JP

PATIENT
  Age: 76 Year
  Sex: Male
  Weight: 55 kg

DRUGS (3)
  1. TAXOTERE [Suspect]
     Indication: LUNG ADENOCARCINOMA
     Route: 041
     Dates: start: 20080306, end: 20080306
  2. RESTAMIN [Concomitant]
     Indication: PREMEDICATION
     Dates: start: 20080306, end: 20080306
  3. DECADRON [Concomitant]
     Indication: PREMEDICATION
     Dates: start: 20080306, end: 20080306

REACTIONS (2)
  - INTESTINAL OBSTRUCTION [None]
  - SEPSIS [None]
